FAERS Safety Report 6517800-4 (Version None)
Quarter: 2009Q4

REPORT INFORMATION
  Report Type: 
  Country: None (occurrence: None)
  Receive Date: 20091218
  Receipt Date: 20091202
  Transmission Date: 20100525
  Serious: No
  Sender: FDA-Public Use
  Company Number: 2009003456

PATIENT
  Sex: Female

DRUGS (9)
  1. TARCEVA [Suspect]
     Indication: LUNG CARCINOMA CELL TYPE UNSPECIFIED STAGE IV
     Dosage: ORAL
     Route: 048
     Dates: start: 20081114, end: 20090731
  2. SIMVASTATIN [Concomitant]
  3. HYDROCORTONE [Concomitant]
  4. LOPERAMIDE (LOPERAMIDE) [Concomitant]
  5. CORLAN (HYDROCORTISONE) [Concomitant]
  6. METFORMIN HCL [Concomitant]
  7. AMLODIPINE [Concomitant]
  8. BENDROFLUAZIDE (BENDROFLUAZIDE) [Concomitant]
  9. RAMIPRIL [Concomitant]

REACTIONS (2)
  - ANAEMIA MACROCYTIC [None]
  - LYMPHOCYTE COUNT DECREASED [None]
